FAERS Safety Report 19021039 (Version 1)
Quarter: 2021Q1

REPORT INFORMATION
  Report Type: Spontaneous
  Country: FI (occurrence: FI)
  Receive Date: 20210317
  Receipt Date: 20210317
  Transmission Date: 20210420
  Serious: Yes (Hospitalization)
  Sender: FDA-Public Use
  Company Number: FI-TEVA-2021-FI-1890272

PATIENT
  Age: 46 Year
  Sex: Female

DRUGS (1)
  1. COPAXONE [Suspect]
     Active Substance: GLATIRAMER ACETATE
     Indication: MULTIPLE SCLEROSIS
     Dates: start: 2002, end: 20200218

REACTIONS (5)
  - Skin tightness [Recovered/Resolved with Sequelae]
  - Skin lesion removal [Recovered/Resolved with Sequelae]
  - Purulent discharge [Recovered/Resolved with Sequelae]
  - Injection site scab [Recovered/Resolved with Sequelae]
  - Scar [Recovered/Resolved with Sequelae]

NARRATIVE: CASE EVENT DATE: 20191211
